FAERS Safety Report 7139282-4 (Version None)
Quarter: 2010Q4

REPORT INFORMATION
  Report Type: 
  Country: None (occurrence: None)
  Receive Date: 20101206
  Receipt Date: 20100809
  Transmission Date: 20110411
  Serious: No
  Sender: FDA-Public Use
  Company Number: A0876167A

PATIENT

DRUGS (1)
  1. LAMICTAL [Suspect]
     Route: 065
     Dates: start: 20100101

REACTIONS (1)
  - MIGRAINE [None]
